FAERS Safety Report 17149844 (Version 2)
Quarter: 2020Q3

REPORT INFORMATION
  Report Type: Spontaneous
  Country: US (occurrence: US)
  Receive Date: 20191213
  Receipt Date: 20200717
  Transmission Date: 20201102
  Serious: Yes (Other)
  Sender: FDA-Public Use
  Company Number: US-ASTRAZENECA-2019SF78637

PATIENT
  Age: 81 Year
  Sex: Male
  Weight: 79.4 kg

DRUGS (72)
  1. NEXIUM [Suspect]
     Active Substance: ESOMEPRAZOLE MAGNESIUM
     Indication: GASTROOESOPHAGEAL REFLUX DISEASE
     Route: 048
     Dates: start: 199001
  2. MIRTAZAPINE. [Concomitant]
     Active Substance: MIRTAZAPINE
     Indication: DEPRESSION
     Dates: start: 2018, end: 2020
  3. COLACE [Concomitant]
     Active Substance: DOCUSATE SODIUM
  4. SYMBICORT [Concomitant]
     Active Substance: BUDESONIDE\FORMOTEROL FUMARATE DIHYDRATE
  5. NULYTELY [Concomitant]
     Active Substance: POLYETHYLENE GLYCOL 3350\POTASSIUM CHLORIDE\SODIUM BICARBONATE\SODIUM CHLORIDE
  6. BENICAR [Concomitant]
     Active Substance: OLMESARTAN MEDOXOMIL
  7. CHOLECALCIFEROL [Concomitant]
     Active Substance: CHOLECALCIFEROL
     Indication: SUPPLEMENTATION THERAPY
     Dates: start: 2018, end: 2020
  8. ZANTAC [Concomitant]
     Active Substance: RANITIDINE HYDROCHLORIDE
     Dates: start: 1990, end: 2020
  9. TUMS [Concomitant]
     Active Substance: CALCIUM CARBONATE
     Dates: start: 1975, end: 1990
  10. ROLAIDS [Concomitant]
     Active Substance: CALCIUM CARBONATE\MAGNESIUM HYDROXIDE
     Dates: start: 1975, end: 1990
  11. URSODIOL. [Concomitant]
     Active Substance: URSODIOL
  12. DOLOBID [Concomitant]
     Active Substance: DIFLUNISAL
  13. MOBIC [Concomitant]
     Active Substance: MELOXICAM
  14. CALCITRIOL. [Concomitant]
     Active Substance: CALCITRIOL
  15. NEXIUM [Suspect]
     Active Substance: ESOMEPRAZOLE MAGNESIUM
     Indication: GASTROOESOPHAGEAL REFLUX DISEASE
     Route: 048
     Dates: start: 2002, end: 2019
  16. PRILOSEC [Suspect]
     Active Substance: OMEPRAZOLE MAGNESIUM
     Indication: GASTROOESOPHAGEAL REFLUX DISEASE
     Route: 048
     Dates: start: 1990, end: 2001
  17. BUSPIRONE [Concomitant]
     Active Substance: BUSPIRONE HYDROCHLORIDE
     Indication: ANXIETY
     Dates: start: 2018, end: 2020
  18. DONEPEZIL. [Concomitant]
     Active Substance: DONEPEZIL
     Indication: DEMENTIA ALZHEIMER^S TYPE
     Dates: start: 2018, end: 2020
  19. BENZONATATE. [Concomitant]
     Active Substance: BENZONATATE
  20. HISTINEX [Concomitant]
  21. CLARINEX [Concomitant]
     Active Substance: DESLORATADINE
  22. STROMECTOL [Concomitant]
     Active Substance: IVERMECTIN
  23. LIPITOR [Concomitant]
     Active Substance: ATORVASTATIN CALCIUM
  24. DOXAZOSIN [Concomitant]
     Active Substance: DOXAZOSIN MESYLATE
  25. NEXIUM [Suspect]
     Active Substance: ESOMEPRAZOLE MAGNESIUM
     Indication: GASTROOESOPHAGEAL REFLUX DISEASE
     Dosage: GENERIC
     Route: 065
     Dates: start: 2016, end: 2017
  26. PROTONIX [Suspect]
     Active Substance: PANTOPRAZOLE SODIUM
     Indication: GASTROOESOPHAGEAL REFLUX DISEASE
     Route: 065
     Dates: start: 199001
  27. ASPIRIN. [Concomitant]
     Active Substance: ASPIRIN
     Indication: BLOOD DISORDER
     Dates: start: 2009, end: 2020
  28. FUROSEMIDE. [Concomitant]
     Active Substance: FUROSEMIDE
     Indication: CARDIAC FAILURE CONGESTIVE
     Dates: start: 2018, end: 2020
  29. METOPROLOL TARTRATE. [Concomitant]
     Active Substance: METOPROLOL TARTRATE
     Indication: HYPERTENSION
     Dates: start: 2018, end: 2020
  30. VITAMIN D3 [Concomitant]
     Active Substance: CHOLECALCIFEROL
  31. MAXIDONE [Concomitant]
     Active Substance: ACETAMINOPHEN\HYDROCODONE BITARTRATE
  32. SKELAXIN [Concomitant]
     Active Substance: METAXALONE
  33. NEXIUM 24HR [Suspect]
     Active Substance: ESOMEPRAZOLE MAGNESIUM
     Indication: GASTROOESOPHAGEAL REFLUX DISEASE
     Route: 048
     Dates: start: 199001
  34. PREVACID [Suspect]
     Active Substance: LANSOPRAZOLE
     Indication: GASTROOESOPHAGEAL REFLUX DISEASE
     Route: 065
     Dates: start: 199001
  35. ISOSORBIDE MONONITRATE. [Concomitant]
     Active Substance: ISOSORBIDE MONONITRATE
     Indication: CARDIAC FAILURE
     Dates: start: 2018, end: 2020
  36. CIMETIDINE [Concomitant]
     Active Substance: CIMETIDINE
     Dates: start: 1990, end: 2020
  37. AMLODIPINE [Concomitant]
     Active Substance: AMLODIPINE BESYLATE
  38. TAMSULOSIN [Concomitant]
     Active Substance: TAMSULOSIN
  39. CELEBREX [Concomitant]
     Active Substance: CELECOXIB
  40. CEPHALEXIN. [Concomitant]
     Active Substance: CEPHALEXIN
  41. PEPCID [Concomitant]
     Active Substance: FAMOTIDINE
  42. FLOMAX [Concomitant]
     Active Substance: TAMSULOSIN HYDROCHLORIDE
  43. URISPAS [Concomitant]
     Active Substance: FLAVOXATE HYDROCHLORIDE
  44. ZYRTEC [Concomitant]
     Active Substance: CETIRIZINE HYDROCHLORIDE
  45. AVAPRO [Concomitant]
     Active Substance: IRBESARTAN
  46. SULINDAC. [Concomitant]
     Active Substance: SULINDAC
  47. NYSTATIN. [Concomitant]
     Active Substance: NYSTATIN
  48. NITROQUICK [Concomitant]
     Active Substance: NITROGLYCERIN
  49. PRILOSEC [Suspect]
     Active Substance: OMEPRAZOLE MAGNESIUM
     Indication: GASTROOESOPHAGEAL REFLUX DISEASE
     Dosage: GENERIC
     Route: 065
     Dates: start: 2009
  50. PREVACID [Suspect]
     Active Substance: LANSOPRAZOLE
     Indication: GASTROOESOPHAGEAL REFLUX DISEASE
     Route: 065
     Dates: start: 2003
  51. PROTONIX [Suspect]
     Active Substance: PANTOPRAZOLE SODIUM
     Indication: GASTROOESOPHAGEAL REFLUX DISEASE
     Route: 065
     Dates: start: 2013, end: 2018
  52. BUDESONIDE?FORMO [Concomitant]
     Indication: ASTHMA
     Dates: start: 2018, end: 2020
  53. FERROUS SULFATE. [Concomitant]
     Active Substance: FERROUS SULFATE
     Indication: BLOOD IRON DECREASED
     Dates: start: 2018, end: 2020
  54. LOSARTAN. [Concomitant]
     Active Substance: LOSARTAN
     Indication: HYPERTENSION
     Dates: start: 2017, end: 2020
  55. SERTRALINE [Concomitant]
     Active Substance: SERTRALINE HYDROCHLORIDE
  56. CARDURA [Concomitant]
     Active Substance: DOXAZOSIN MESYLATE
  57. RELAFEN [Concomitant]
     Active Substance: NABUMETONE
  58. METOCLOPRAMIDE. [Concomitant]
     Active Substance: METOCLOPRAMIDE
  59. PRILOSEC [Suspect]
     Active Substance: OMEPRAZOLE MAGNESIUM
     Indication: GASTROOESOPHAGEAL REFLUX DISEASE
     Route: 048
     Dates: start: 199001
  60. PROTONIX [Suspect]
     Active Substance: PANTOPRAZOLE SODIUM
     Indication: GASTROOESOPHAGEAL REFLUX DISEASE
     Dosage: GENERIC
     Route: 065
     Dates: start: 2013, end: 2017
  61. PRIMIDONE. [Concomitant]
     Active Substance: PRIMIDONE
  62. DESONIDE. [Concomitant]
     Active Substance: DESONIDE
  63. VIOXX [Concomitant]
     Active Substance: ROFECOXIB
  64. VERAPAMIL [Concomitant]
     Active Substance: VERAPAMIL HYDROCHLORIDE
  65. ALLEGRA [Concomitant]
     Active Substance: FEXOFENADINE HYDROCHLORIDE
  66. NIFEREX [Concomitant]
  67. HYOSCYAMINE. [Concomitant]
     Active Substance: HYOSCYAMINE
  68. NEXIUM 24HR [Suspect]
     Active Substance: ESOMEPRAZOLE MAGNESIUM
     Indication: GASTROOESOPHAGEAL REFLUX DISEASE
     Route: 048
     Dates: start: 2002, end: 2019
  69. LEVOTHYROXINE. [Concomitant]
     Active Substance: LEVOTHYROXINE
  70. ANALPRAM [Concomitant]
  71. TRIMOX [Concomitant]
     Active Substance: AMOXICILLIN
  72. SALSALATE. [Concomitant]
     Active Substance: SALSALATE

REACTIONS (5)
  - Chronic kidney disease [Not Recovered/Not Resolved]
  - Renal failure [Unknown]
  - Acute kidney injury [Not Recovered/Not Resolved]
  - Hyperparathyroidism secondary [Unknown]
  - Nephrogenic anaemia [Unknown]

NARRATIVE: CASE EVENT DATE: 2011
